FAERS Safety Report 21394635 (Version 1)
Quarter: 2022Q3

REPORT INFORMATION
  Report Type: Spontaneous
  Country: DE (occurrence: DE)
  Receive Date: 20220930
  Receipt Date: 20220930
  Transmission Date: 20221027
  Serious: Yes (Hospitalization, Other)
  Sender: FDA-Public Use
  Company Number: DE-ADRED-08166-01

PATIENT
  Age: 45 Year
  Sex: Male

DRUGS (2)
  1. HYDROCHLOROTHIAZIDE [Suspect]
     Active Substance: HYDROCHLOROTHIAZIDE
     Indication: Product used for unknown indication
     Dosage: 25 MG, 2.5-0-0-0, TABLETS
     Route: 048
  2. POTASSIUM CHLORIDE [Suspect]
     Active Substance: POTASSIUM CHLORIDE
     Indication: Product used for unknown indication
     Dosage: UNK, (2-2-2-0, TABLETS)
     Route: 048

REACTIONS (3)
  - Product dose omission issue [Unknown]
  - Hypokalaemia [Unknown]
  - Product administration error [Unknown]

NARRATIVE: CASE EVENT DATE: 20210901
